FAERS Safety Report 8851125 (Version 4)
Quarter: 2013Q1

REPORT INFORMATION
  Report Type: Spontaneous
  Country: JP (occurrence: JP)
  Receive Date: 20121020
  Receipt Date: 20130102
  Transmission Date: 20140127
  Serious: Yes (Other)
  Sender: FDA-Public Use
  Company Number: JP-AMGEN-JPNSP2012066481

PATIENT
  Age: 54 Year
  Sex: Male

DRUGS (15)
  1. ARANESP [Suspect]
     Indication: NEPHROGENIC ANAEMIA
     Dosage: 60 MUG, QWK
     Route: 040
     Dates: start: 200911
  2. ARANESP [Suspect]
     Dosage: 80 MUG, QWK
     Route: 040
     Dates: start: 20120521
  3. PARIET [Suspect]
     Dosage: 10 MG, QD
     Route: 048
  4. TICLOPIDINE HYDROCHLORIDE [Suspect]
     Dosage: 100 MG, QD
     Route: 048
  5. ALLOPURINOL [Suspect]
     Dosage: 50 MG, QD
     Route: 048
  6. REGPARA [Concomitant]
     Dosage: 25 MG, QD
     Route: 048
  7. ASPARA-CA [Concomitant]
     Dosage: 1600 MG, BID
     Route: 048
  8. LUPRAC [Concomitant]
     Dosage: 8 MG, QD
     Route: 048
  9. KALLIKREIN [Concomitant]
     Dosage: 30 DF, TID
     Route: 048
  10. PLATIBIT [Concomitant]
     Dosage: 0.25 MUG, QD
     Route: 048
  11. SELBEX [Concomitant]
     Dosage: 150 MG, TID
     Route: 048
  12. OLMETEC [Concomitant]
     Dosage: 10 MG, QD
     Route: 048
  13. RENAGEL [Concomitant]
     Dosage: 3000 MG, TID
     Route: 048
  14. FOSRENOL [Concomitant]
     Dosage: 2250 MG, TID
     Route: 048
  15. CALTAN [Concomitant]
     Dosage: 4500 MG, TID
     Route: 048

REACTIONS (1)
  - Aplasia pure red cell [Not Recovered/Not Resolved]
